FAERS Safety Report 19245785 (Version 2)
Quarter: 2021Q3

REPORT INFORMATION
  Report Type: Other
  Country: CA (occurrence: CA)
  Receive Date: 20210511
  Receipt Date: 20210824
  Transmission Date: 20211014
  Serious: Yes (Hospitalization)
  Sender: FDA-Public Use
  Company Number: CA-CELLTRION INC.-2021CA006255

PATIENT

DRUGS (14)
  1. VITAMIN C [Concomitant]
     Active Substance: ASCORBIC ACID
  2. LORAZEPAM. [Concomitant]
     Active Substance: LORAZEPAM
  3. TYLENOL [Concomitant]
     Active Substance: ACETAMINOPHEN
  4. CALCIUM [Concomitant]
     Active Substance: CALCIUM
  5. IMMUNOGLOBULIN (IMMUNOGLOBULIN HUMAN NORMAL) [Concomitant]
     Active Substance: HUMAN IMMUNOGLOBULIN G
     Indication: PRODUCT USED FOR UNKNOWN INDICATION
     Dosage: 1 EVERY 2 WEEKS
     Route: 042
  6. OXYCONTIN [Concomitant]
     Active Substance: OXYCODONE HYDROCHLORIDE
  7. RITUXIMAB. [Suspect]
     Active Substance: RITUXIMAB
     Indication: VASCULITIS
     Dosage: 1000.0 MG, 1 EVERY 15 DAYS
     Route: 041
  8. RITUXIMAB. [Suspect]
     Active Substance: RITUXIMAB
     Indication: RHEUMATOID ARTHRITIS
  9. DEXAMETHASONE. [Concomitant]
     Active Substance: DEXAMETHASONE
     Route: 065
  10. BENADRYL [Concomitant]
     Active Substance: DIPHENHYDRAMINE HYDROCHLORIDE
  11. INSULIN [Concomitant]
     Active Substance: INSULIN NOS
  12. GABAPENTIN. [Concomitant]
     Active Substance: GABAPENTIN
  13. METHYLPREDNISOLONE SODIUM SUCCINATE. [Concomitant]
     Active Substance: METHYLPREDNISOLONE SODIUM SUCCINATE
  14. OREGANO. [Concomitant]
     Active Substance: OREGANO

REACTIONS (7)
  - Hallucination [Unknown]
  - Panic attack [Unknown]
  - Off label use [Unknown]
  - Memory impairment [Unknown]
  - Skin erosion [Unknown]
  - Thrombosis [Unknown]
  - Lung disorder [Unknown]
